FAERS Safety Report 5317231-9 (Version None)
Quarter: 2007Q2

REPORT INFORMATION
  Report Type: 
  Country: None (occurrence: None)
  Receive Date: 20070504
  Receipt Date: 20070424
  Transmission Date: 20071010
  Serious: Yes (Hospitalization)
  Sender: FDA-Public Use
  Company Number: FR-PFIZER INC-2007032817

PATIENT
  Sex: Female

DRUGS (2)
  1. CELEBREX [Suspect]
  2. FLUINDIONE [Concomitant]

REACTIONS (1)
  - HAEMATOMA [None]
